FAERS Safety Report 23258505 (Version 3)
Quarter: 2024Q1

REPORT INFORMATION
  Report Type: Other
  Country: US (occurrence: US)
  Receive Date: 20231204
  Receipt Date: 20240131
  Transmission Date: 20240410
  Serious: Yes (Death, Hospitalization, Other)
  Sender: FDA-Public Use
  Company Number: US-TRAVERE-2023TVT00726

PATIENT
  Age: 4 Month
  Sex: Male

DRUGS (6)
  1. CHOLBAM [Suspect]
     Active Substance: CHOLIC ACID
     Indication: Cerebrohepatorenal syndrome
     Route: 048
     Dates: start: 20230823, end: 20231201
  2. CHOLBAM [Suspect]
     Active Substance: CHOLIC ACID
     Route: 048
  3. Vitamin D Infant [Concomitant]
  4. DIETARY SUPPLEMENT [Concomitant]
     Active Substance: DIETARY SUPPLEMENT
  5. KEPPRA [Concomitant]
     Active Substance: LEVETIRACETAM
  6. URSODIOL [Concomitant]
     Active Substance: URSODIOL

REACTIONS (5)
  - Death [Fatal]
  - Venoocclusive liver disease [Unknown]
  - Renal failure [Unknown]
  - Hospitalisation [Unknown]
  - Hepatic cirrhosis [Unknown]

NARRATIVE: CASE EVENT DATE: 20231201
